FAERS Safety Report 4468666-8 (Version None)
Quarter: 2004Q4

REPORT INFORMATION
  Report Type: 
  Country: None (occurrence: None)
  Receive Date: 20041007
  Receipt Date: 20040930
  Transmission Date: 20050328
  Serious: Yes (Hospitalization, Other)
  Sender: FDA-Public Use
  Company Number: US-MERCK-0410USA00028

PATIENT
  Age: 89 Year
  Sex: Female

DRUGS (8)
  1. LOTENSIN [Concomitant]
     Route: 065
     Dates: end: 20040101
  2. LASIX [Concomitant]
     Route: 065
  3. PRINIVIL [Suspect]
     Indication: HYPERTENSION
     Route: 048
     Dates: start: 20040101, end: 20040901
  4. CITRUCEL [Suspect]
     Indication: INTESTINAL FUNCTIONAL DISORDER
     Route: 048
     Dates: start: 19980101, end: 20040101
  5. CITRUCEL [Suspect]
     Indication: DIVERTICULUM
     Route: 048
     Dates: start: 19980101, end: 20040101
  6. CITRUCEL [Suspect]
     Route: 048
     Dates: start: 20040101, end: 20040901
  7. CITRUCEL [Suspect]
     Route: 048
     Dates: start: 20040101, end: 20040901
  8. ZOCOR [Concomitant]
     Route: 065

REACTIONS (3)
  - BLOOD POTASSIUM INCREASED [None]
  - EXCORIATION [None]
  - FATIGUE [None]
